FAERS Safety Report 9089126 (Version 1)
Quarter: 2013Q1

REPORT INFORMATION
  Report Type: Spontaneous
  Country: IT (occurrence: IT)
  Receive Date: 20130131
  Receipt Date: 20130131
  Transmission Date: 20140127
  Serious: Yes (Hospitalization)
  Sender: FDA-Public Use
  Company Number: PHHY2013IT007885

PATIENT
  Sex: Female

DRUGS (9)
  1. CEFTRIAXONE [Suspect]
     Indication: BRONCHOPNEUMONIA
     Dosage: 1 POSOLOGIC UNIT
     Route: 030
     Dates: start: 20121126, end: 20121201
  2. LEVOFLOXACIN [Suspect]
     Indication: BRONCHOPNEUMONIA
     Dosage: 1 POSOLOGIC UNIT
     Route: 048
     Dates: start: 20121121, end: 20121125
  3. AUGMENTIN [Concomitant]
     Dosage: UNK UKN, UNK
     Route: 048
     Dates: start: 20121117, end: 20121120
  4. NORVASC [Concomitant]
  5. ALMARYTM [Concomitant]
  6. COAPROVEL [Concomitant]
  7. TIKLID [Concomitant]
  8. ONGLYZA [Concomitant]
  9. REPAGLINIDE [Concomitant]

REACTIONS (1)
  - Renal failure chronic [Unknown]
